FAERS Safety Report 8323442-0 (Version None)
Quarter: 2012Q2

REPORT INFORMATION
  Report Type: 
  Country: None (occurrence: None)
  Receive Date: 20120501
  Receipt Date: 20120423
  Transmission Date: 20120825
  Serious: Yes (Hospitalization)
  Sender: FDA-Public Use
  Company Number: US-SP-2011-07619

PATIENT
  Sex: Male

DRUGS (3)
  1. THERACYS [Suspect]
     Route: 043
     Dates: start: 20100101, end: 20100101
  2. THERACYS [Suspect]
     Route: 043
     Dates: start: 20100101, end: 20100101
  3. THERACYS [Suspect]
     Indication: BLADDER CANCER
     Route: 043
     Dates: start: 20110728, end: 20110728

REACTIONS (6)
  - BOVINE TUBERCULOSIS [None]
  - PYREXIA [None]
  - BLADDER CANCER RECURRENT [None]
  - MYCOBACTERIUM TUBERCULOSIS COMPLEX TEST POSITIVE [None]
  - DYSURIA [None]
  - HYPERHIDROSIS [None]
